FAERS Safety Report 10924236 (Version 1)
Quarter: 2015Q1

REPORT INFORMATION
  Report Type: Spontaneous
  Country: US (occurrence: None)
  Receive Date: 20150316
  Receipt Date: 20150316
  Transmission Date: 20150721
  Serious: No
  Sender: FDA-Public Use
  Company Number: None

PATIENT
  Age: 34 Year
  Sex: Female
  Weight: 104.33 kg

DRUGS (1)
  1. SUPRAX [Suspect]
     Active Substance: CEFIXIME
     Indication: ASTHMA
     Dosage: 1 PILL A DAY FOR 5 DAYS
     Route: 048
     Dates: start: 20150309, end: 20150310

REACTIONS (6)
  - Fatigue [None]
  - Dizziness [None]
  - Burning sensation [None]
  - Rash pruritic [None]
  - Headache [None]
  - Documented hypersensitivity to administered product [None]

NARRATIVE: CASE EVENT DATE: 20150310
